FAERS Safety Report 10904221 (Version 1)
Quarter: 2015Q1

REPORT INFORMATION
  Report Type: Spontaneous
  Country: IN (occurrence: None)
  Receive Date: 20150306
  Receipt Date: 20150306
  Transmission Date: 20150721
  Serious: Yes (Hospitalization)
  Sender: FDA-Public Use
  Company Number: NSR_01982_2015

PATIENT
  Age: 30 Year
  Sex: Female

DRUGS (1)
  1. TRAMADOL (TRAMADOL) 50 MG [Suspect]
     Active Substance: TRAMADOL
     Indication: MIGRAINE
     Dosage: 1 TABLET AS NEEDED

REACTIONS (21)
  - Nausea [None]
  - Nervousness [None]
  - Drug abuse [None]
  - Crying [None]
  - Insomnia [None]
  - Self-medication [None]
  - Seizure [None]
  - Diarrhoea [None]
  - Malaise [None]
  - Abdominal discomfort [None]
  - Generalised tonic-clonic seizure [None]
  - Hyperhidrosis [None]
  - Irritability [None]
  - Dry mouth [None]
  - Drug withdrawal syndrome [None]
  - Coordination abnormal [None]
  - Overdose [None]
  - Dizziness [None]
  - Paraesthesia [None]
  - Anxiety [None]
  - Drug withdrawal convulsions [None]
